FAERS Safety Report 15487508 (Version 1)
Quarter: 2018Q4

REPORT INFORMATION
  Report Type: Spontaneous
  Country: CH (occurrence: CH)
  Receive Date: 20181011
  Receipt Date: 20181011
  Transmission Date: 20190205
  Serious: Yes (Other)
  Sender: FDA-Public Use
  Company Number: CH-ROCHE-2195319

PATIENT
  Age: 62 Year
  Sex: Male

DRUGS (1)
  1. MABTHERA [Suspect]
     Active Substance: RITUXIMAB
     Indication: NON-HODGKIN^S LYMPHOMA
     Route: 042
     Dates: start: 20110418, end: 20110809

REACTIONS (2)
  - Non-Hodgkin^s lymphoma recurrent [Not Recovered/Not Resolved]
  - Cytomegalovirus infection [Unknown]

NARRATIVE: CASE EVENT DATE: 201208
